FAERS Safety Report 23534674 (Version 2)
Quarter: 2024Q1

REPORT INFORMATION
  Report Type: Report from Study
  Country: US (occurrence: US)
  Receive Date: 20240217
  Receipt Date: 20240220
  Transmission Date: 20240410
  Serious: Yes (Hospitalization, Other)
  Sender: FDA-Public Use
  Company Number: US-ABBVIE-5642356

PATIENT
  Sex: Male

DRUGS (6)
  1. SKYRIZI [Suspect]
     Active Substance: RISANKIZUMAB-RZAA
     Indication: Crohn^s disease
     Dosage: FORM STRENGTH: 2.4MILLILITRE(S),?FREQUENCY TEXT: WEEK 12,?360 MG ON BODY INJECTOR UNDER THE SKIN ...
     Route: 058
     Dates: start: 202311, end: 202311
  2. SKYRIZI [Suspect]
     Active Substance: RISANKIZUMAB-RZAA
     Route: 058
     Dates: start: 20230807
  3. SKYRIZI [Suspect]
     Active Substance: RISANKIZUMAB-RZAA
     Dosage: FREQUENCY TEXT: WEEK 12,
     Route: 058
  4. SKYRIZI [Suspect]
     Active Substance: RISANKIZUMAB-RZAA
     Indication: Crohn^s disease
     Dosage: WEEK 4,?FORM STRENGTH: 600MILLIGRAM
     Route: 042
     Dates: start: 2023, end: 2023
  5. SKYRIZI [Suspect]
     Active Substance: RISANKIZUMAB-RZAA
     Indication: Crohn^s disease
     Dosage: WEEK 0,?FORM STRENGTH: 600MILLIGRAM
     Route: 042
     Dates: start: 202308, end: 202308
  6. SKYRIZI [Suspect]
     Active Substance: RISANKIZUMAB-RZAA
     Indication: Crohn^s disease
     Dosage: WEEK 8,?FORM STRENGTH: 600MILLIGRAM
     Route: 042
     Dates: start: 2023, end: 2023

REACTIONS (3)
  - Intestinal obstruction [Unknown]
  - Unevaluable event [Unknown]
  - Illness [Unknown]
